FAERS Safety Report 18685969 (Version 1)
Quarter: 2020Q4

REPORT INFORMATION
  Report Type: Spontaneous
  Country: DE (occurrence: DE)
  Receive Date: 20201231
  Receipt Date: 20201231
  Transmission Date: 20210114
  Serious: Yes (Other)
  Sender: FDA-Public Use
  Company Number: DE-TEVA-2020-DE-1862180

PATIENT
  Age: 5 Month
  Sex: Male
  Weight: 2.61 kg

DRUGS (2)
  1. BISOPROLOL [Suspect]
     Active Substance: BISOPROLOL
     Indication: TACHYCARDIA
     Dosage: 2.5MG/D,  2 SEPARATED DOSES
     Route: 064
     Dates: start: 20190930, end: 20200705
  2. PRESINOL 250 [Suspect]
     Active Substance: METHYLDOPA
     Indication: HYPERTENSION
     Dosage: 500 [MG/D ] 2 SEPARATED DOSES
     Route: 064
     Dates: start: 20190930, end: 20200705

REACTIONS (2)
  - Foetal exposure during pregnancy [Unknown]
  - Small for dates baby [Recovered/Resolved]
